FAERS Safety Report 24832371 (Version 2)
Quarter: 2025Q1

REPORT INFORMATION
  Report Type: Spontaneous
  Country: US (occurrence: US)
  Receive Date: 20250110
  Receipt Date: 20250127
  Transmission Date: 20250408
  Serious: No
  Sender: ALKERMES
  Company Number: US-ALKERMES INC.-ALK-2024-003322

PATIENT
  Sex: Female

DRUGS (1)
  1. VIVITROL [Suspect]
     Active Substance: NALTREXONE
     Indication: Alcoholism
     Route: 030
     Dates: start: 202410

REACTIONS (4)
  - Injection site mass [Not Recovered/Not Resolved]
  - Injection site swelling [Unknown]
  - Abdominal pain [Unknown]
  - Eye colour change [Unknown]

NARRATIVE: CASE EVENT DATE: 20240101
